FAERS Safety Report 8595986-8 (Version None)
Quarter: 2012Q3

REPORT INFORMATION
  Report Type: 
  Country: None (occurrence: None)
  Receive Date: 20120815
  Receipt Date: 20120810
  Transmission Date: 20120928
  Serious: Yes (Hospitalization)
  Sender: FDA-Public Use
  Company Number: FR-ROCHE-1101000

PATIENT
  Age: 69 Year
  Sex: Female

DRUGS (5)
  1. LEXOMIL [Concomitant]
  2. TRAMADOL HCL [Concomitant]
  3. LOVENOX [Concomitant]
  4. ZELBORAF [Suspect]
     Indication: METASTATIC MALIGNANT MELANOMA
     Route: 048
     Dates: start: 20120509
  5. KETOPROFEN [Concomitant]
     Dosage: DRUG REPORTED AS BIOPROFENID LP

REACTIONS (4)
  - PAPILLOMA [None]
  - SQUAMOUS CELL CARCINOMA [None]
  - RASH [None]
  - BLOOD CREATININE INCREASED [None]
